FAERS Safety Report 5478840-X (Version None)
Quarter: 2007Q4

REPORT INFORMATION
  Report Type: 
  Country: None (occurrence: None)
  Receive Date: 20071002
  Receipt Date: 20070917
  Transmission Date: 20080405
  Serious: Yes (Congenital Anomaly, Other)
  Sender: FDA-Public Use
  Company Number: 060001M07GBR

PATIENT
  Age: 24 Year
  Sex: Female

DRUGS (2)
  1. CLOMIPHENE CITRATE [Suspect]
     Dosage: 50 MG, ORAL
     Route: 048
  2. CLARTHROMYCIN (CLATHROMYCIN) [Concomitant]

REACTIONS (5)
  - CONGENITAL ANOMALY [None]
  - CONJOINED TWINS [None]
  - CYSTIC LYMPHANGIOMA [None]
  - DRUG EXPOSURE DURING PREGNANCY [None]
  - HYPOPLASTIC LEFT HEART SYNDROME [None]
